FAERS Safety Report 9452918 (Version 1)
Quarter: 2013Q3

REPORT INFORMATION
  Report Type: Spontaneous
  Country: FR (occurrence: FR)
  Receive Date: 20130812
  Receipt Date: 20130812
  Transmission Date: 20140515
  Serious: Yes (Death, Life-Threatening, Hospitalization, Other)
  Sender: FDA-Public Use
  Company Number: FR-MERCK-1308FRA000736

PATIENT
  Age: 71 Year
  Sex: Male

DRUGS (9)
  1. ORGARAN [Suspect]
     Dosage: UNK
     Route: 042
     Dates: start: 20130711
  2. KARDEGIC [Concomitant]
     Dosage: 75 MG, QD
  3. DEDROGYL [Concomitant]
     Dosage: 4 GTT, UNK
  4. DOLIPRANE [Concomitant]
     Dosage: 4 G, QD
  5. FLUIDABAK [Concomitant]
  6. LAROXYL [Concomitant]
  7. NOVO-NORM [Concomitant]
     Dosage: 0.5 MG, TID
  8. RIVOTRIL [Concomitant]
     Dosage: 4 GTT, UNK
  9. XELEVIA [Concomitant]
     Dosage: 100 MG, QD

REACTIONS (2)
  - Thrombocytopenia [Fatal]
  - Pulmonary embolism [Fatal]
